FAERS Safety Report 15272451 (Version 2)
Quarter: 2018Q3

REPORT INFORMATION
  Report Type: Spontaneous
  Country: US (occurrence: US)
  Receive Date: 20180813
  Receipt Date: 20180903
  Transmission Date: 20181010
  Serious: No
  Sender: FDA-Public Use
  Company Number: US-SA-2018SA133729

PATIENT
  Sex: Female

DRUGS (1)
  1. AUBAGIO [Suspect]
     Active Substance: TERIFLUNOMIDE
     Indication: MULTIPLE SCLEROSIS
     Dosage: 14 MG,QD
     Route: 048
     Dates: start: 2016

REACTIONS (8)
  - Fatigue [Not Recovered/Not Resolved]
  - Micturition urgency [Unknown]
  - Peroneal nerve palsy [Unknown]
  - Muscular weakness [Not Recovered/Not Resolved]
  - Pollakiuria [Unknown]
  - Gait disturbance [Not Recovered/Not Resolved]
  - Ataxia [Unknown]
  - Balance disorder [Not Recovered/Not Resolved]
